FAERS Safety Report 8534507-2 (Version None)
Quarter: 2012Q3

REPORT INFORMATION
  Report Type: 
  Country: None (occurrence: None)
  Receive Date: 20120724
  Receipt Date: 20120716
  Transmission Date: 20120928
  Serious: Yes (Other)
  Sender: FDA-Public Use
  Company Number: US-ASTRAZENECA-2010SE58688

PATIENT
  Age: 51 Year
  Sex: Male
  Weight: 74.8 kg

DRUGS (4)
  1. SEROQUEL XR [Suspect]
     Indication: BIPOLAR DISORDER
     Route: 048
     Dates: start: 20100601, end: 20100701
  2. METHADONE HCL [Concomitant]
     Indication: BACK PAIN
  3. SEROQUEL XR [Suspect]
     Route: 048
     Dates: start: 20100701
  4. SEROQUEL XR [Suspect]
     Route: 048

REACTIONS (8)
  - ANXIETY [None]
  - SUICIDAL IDEATION [None]
  - INSOMNIA [None]
  - INTENTIONAL DRUG MISUSE [None]
  - MYALGIA [None]
  - PANIC ATTACK [None]
  - MALAISE [None]
  - DRUG DOSE OMISSION [None]
